FAERS Safety Report 24350607 (Version 1)
Quarter: 2024Q3

REPORT INFORMATION
  Report Type: Spontaneous
  Country: CN (occurrence: CN)
  Receive Date: 20240923
  Receipt Date: 20240923
  Transmission Date: 20241017
  Serious: No
  Sender: ROCHE
  Company Number: CN-ROCHE-3519938

PATIENT
  Age: 37 Year
  Sex: Female
  Weight: 82.0 kg

DRUGS (2)
  1. HERCEPTIN [Suspect]
     Active Substance: TRASTUZUMAB
     Indication: Symptomatic treatment
     Dosage: FORM OF ADMIN TEXT: POWDER INJECTION
     Route: 041
     Dates: start: 20240222, end: 20240222
  2. HERCEPTIN [Suspect]
     Active Substance: TRASTUZUMAB
     Route: 041
     Dates: start: 20240222, end: 20240222

REACTIONS (2)
  - Pyrexia [Recovering/Resolving]
  - Chills [Recovering/Resolving]

NARRATIVE: CASE EVENT DATE: 20240222
